FAERS Safety Report 20655232 (Version 1)
Quarter: 2022Q1

REPORT INFORMATION
  Report Type: Report from Study
  Country: US (occurrence: US)
  Receive Date: 20220330
  Receipt Date: 20220330
  Transmission Date: 20220424
  Serious: No
  Sender: FDA-Public Use
  Company Number: US-KYOWAKIRIN-2022BKK004267

PATIENT

DRUGS (1)
  1. CRYSVITA [Suspect]
     Active Substance: BUROSUMAB-TWZA
     Indication: Product used for unknown indication
     Dosage: UNK
     Route: 065

REACTIONS (6)
  - Obesity [Unknown]
  - Temporomandibular joint syndrome [Unknown]
  - Rhinitis allergic [Unknown]
  - Essential hypertension [Unknown]
  - COVID-19 [Not Recovered/Not Resolved]
  - Vitamin D deficiency [Unknown]
